FAERS Safety Report 4802798-7 (Version None)
Quarter: 2005Q4

REPORT INFORMATION
  Report Type: 
  Country: None (occurrence: None)
  Receive Date: 20051013
  Receipt Date: 20051010
  Transmission Date: 20060501
  Serious: Yes (Life-Threatening, Other)
  Sender: FDA-Public Use
  Company Number: ES-2005-005235

PATIENT
  Age: 73 Year
  Sex: Male

DRUGS (1)
  1. MAGNEVIST [Suspect]
     Dosage: 20 ML
     Dates: start: 20050219, end: 20050219

REACTIONS (3)
  - HICCUPS [None]
  - NAUSEA [None]
  - PROCEDURAL COMPLICATION [None]
